FAERS Safety Report 4818734-3 (Version None)
Quarter: 2005Q4

REPORT INFORMATION
  Report Type: 
  Country: None (occurrence: None)
  Receive Date: 20051102
  Receipt Date: 20051024
  Transmission Date: 20060501
  Serious: Yes (Death)
  Sender: FDA-Public Use
  Company Number: GB-MERCK-0510GBR00154

PATIENT
  Age: 63 Year
  Sex: Male

DRUGS (13)
  1. FOSAMAX [Suspect]
     Route: 048
  2. TIOTROPIUM BROMIDE [Suspect]
     Indication: CHRONIC OBSTRUCTIVE PULMONARY DISEASE
     Route: 065
  3. BUMETANIDE [Suspect]
     Route: 065
  4. INSULIN LISPRO [Suspect]
     Route: 065
  5. INSULIN HUMAN [Suspect]
     Route: 065
  6. INSULIN, BIPHASIC ISOPHANE [INJECTION] [Suspect]
     Route: 065
  7. LISINOPRIL [Suspect]
     Route: 065
  8. SINGULAIR [Suspect]
     Route: 065
  9. NYSTATIN [Suspect]
     Route: 065
  10. ACETAMINOPHEN [Suspect]
     Route: 065
  11. ALBUTEROL [Suspect]
     Route: 055
  12. FLUTICASONE PROPIONATE AND SALMETEROL XINAFOATE [Suspect]
     Route: 065
  13. TRAMADOL HYDROCHLORIDE [Suspect]
     Route: 065

REACTIONS (1)
  - LOBAR PNEUMONIA [None]
